FAERS Safety Report 9744129 (Version 2)
Quarter: 2014Q1

REPORT INFORMATION
  Report Type: Spontaneous
  Country: IL (occurrence: IL)
  Receive Date: 20131210
  Receipt Date: 20140117
  Transmission Date: 20141002
  Serious: Yes (Other)
  Sender: FDA-Public Use
  Company Number: IL-PFIZER INC-2013351968

PATIENT
  Age: 30 Year
  Sex: Female

DRUGS (2)
  1. GEODON [Suspect]
     Indication: SCHIZOPHRENIA
     Dosage: 80 (UNIT UNKNOWN), 2X/DAY
  2. SEROQUEL [Suspect]
     Dosage: UNK

REACTIONS (3)
  - Agitation [Unknown]
  - Paranoia [Unknown]
  - Drug effect decreased [Unknown]
